FAERS Safety Report 4912983-1 (Version None)
Quarter: 2006Q1

REPORT INFORMATION
  Report Type: 
  Country: None (occurrence: None)
  Receive Date: 20060210
  Receipt Date: 20060131
  Transmission Date: 20060701
  Serious: Yes (Hospitalization)
  Sender: FDA-Public Use
  Company Number: HQWYE872309DEC04

PATIENT
  Age: 74 Year
  Sex: Female

DRUGS (10)
  1. RAPAMUNE [Suspect]
     Indication: PROPHYLAXIS AGAINST TRANSPLANT REJECTION
     Dosage: ORAL
     Route: 048
     Dates: end: 20041206
  2. CANCIDAS [Suspect]
     Indication: BRONCHOPULMONARY ASPERGILLOSIS
     Dosage: INTRAVENOUS
     Route: 042
     Dates: start: 20040101, end: 20041201
  3. FLUCONAZOLE [Suspect]
     Indication: MUCORMYCOSIS
  4. ISONIAZID [Suspect]
     Indication: TUBERCULIN TEST POSITIVE
     Dosage: SEE IMAGE
     Dates: end: 20041201
  5. ISONIAZID [Suspect]
     Indication: TUBERCULIN TEST POSITIVE
     Dosage: SEE IMAGE
     Dates: start: 20041201
  6. PREDNISONE TAB [Suspect]
     Indication: PROPHYLAXIS AGAINST TRANSPLANT REJECTION
     Dosage: SEE IMAGE
     Route: 048
     Dates: end: 20041201
  7. PREDNISONE TAB [Suspect]
     Indication: PROPHYLAXIS AGAINST TRANSPLANT REJECTION
     Dosage: SEE IMAGE
     Route: 048
     Dates: start: 20041201
  8. TACROLIMUS (TACROLIMUS, ) [Suspect]
     Indication: PROPHYLAXIS AGAINST TRANSPLANT REJECTION
     Dosage: ORAL
     Route: 048
  9. VORICONAZOLE (VORICONAZOLE, ) [Suspect]
     Indication: MUCORMYCOSIS
  10. ZENAPAX [Suspect]
     Indication: PROPHYLAXIS AGAINST TRANSPLANT REJECTION

REACTIONS (10)
  - ALANINE AMINOTRANSFERASE INCREASED [None]
  - ASPARTATE AMINOTRANSFERASE INCREASED [None]
  - BLOOD ALKALINE PHOSPHATASE INCREASED [None]
  - BLOOD CREATININE INCREASED [None]
  - COMPUTERISED TOMOGRAM ABNORMAL [None]
  - DECREASED IMMUNE RESPONSIVENESS [None]
  - DRUG TOXICITY [None]
  - IMMUNOSUPPRESSANT DRUG LEVEL INCREASED [None]
  - PULMONARY MYCOSIS [None]
  - RENAL FAILURE ACUTE [None]
